FAERS Safety Report 19707717 (Version 1)
Quarter: 2021Q3

REPORT INFORMATION
  Report Type: Spontaneous
  Country: US (occurrence: US)
  Receive Date: 20210816
  Receipt Date: 20210816
  Transmission Date: 20211014
  Serious: Yes (Hospitalization)
  Sender: FDA-Public Use
  Company Number: None

PATIENT
  Age: 69 Year
  Sex: Female

DRUGS (1)
  1. COPAXONE [Suspect]
     Active Substance: GLATIRAMER ACETATE
     Indication: MULTIPLE SCLEROSIS
     Route: 058
     Dates: start: 20210131, end: 20210204

REACTIONS (4)
  - Nausea [None]
  - Thrombosis [None]
  - Bladder disorder [None]
  - Gastrointestinal disorder [None]

NARRATIVE: CASE EVENT DATE: 20210131
